FAERS Safety Report 4455682-5 (Version None)
Quarter: 2004Q3

REPORT INFORMATION
  Report Type: 
  Country: None (occurrence: None)
  Receive Date: 20040920
  Receipt Date: 20040913
  Transmission Date: 20050211
  Serious: Yes (Death, Other)
  Sender: FDA-Public Use
  Company Number: US-JNJFOC-20040903570

PATIENT
  Age: 39 Year
  Sex: Male

DRUGS (2)
  1. ACETAMINOPHEN [Suspect]
     Dosage: ORAL
     Route: 048
  2. DISULFIRAM [Suspect]
     Dosage: ORAL
     Route: 048

REACTIONS (8)
  - COAGULOPATHY [None]
  - HEPATIC ENCEPHALOPATHY [None]
  - HEPATIC FAILURE [None]
  - HEPATITIS FULMINANT [None]
  - INTERNATIONAL NORMALISED RATIO INCREASED [None]
  - INTRACRANIAL PRESSURE INCREASED [None]
  - RENAL FAILURE [None]
  - THERAPY NON-RESPONDER [None]
